FAERS Safety Report 20496246 (Version 1)
Quarter: 2022Q1

REPORT INFORMATION
  Report Type: Spontaneous
  Country: DE (occurrence: DE)
  Receive Date: 20220221
  Receipt Date: 20220221
  Transmission Date: 20220424
  Serious: Yes (Hospitalization, Other)
  Sender: FDA-Public Use
  Company Number: DE-NOVARTISPH-NVSC2022DE037788

PATIENT
  Age: 14 Year
  Sex: Male
  Weight: 44 kg

DRUGS (13)
  1. PREDNISOLONE [Suspect]
     Active Substance: PREDNISOLONE
     Indication: Renal transplant
     Dosage: DAILY DOSE: 2.5 MG MILLGRAM(S) EVERY DAYS
     Route: 048
     Dates: start: 20200417
  2. TACROLIMUS [Suspect]
     Active Substance: TACROLIMUS
     Indication: Renal transplant
     Dosage: DAILY DOSE: 3.2 MG MILLGRAM(S) EVERY DAYS 2 SEPARATED DOSES
     Route: 048
     Dates: start: 201703, end: 20200602
  3. CELLCEPT [Suspect]
     Active Substance: MYCOPHENOLATE MOFETIL
     Indication: Renal transplant
     Dosage: DAILY DOSE: 1000 MG MILLGRAM(S) EVERY DAYS 2 SEPARATED DOSES
     Route: 048
     Dates: start: 201011
  4. VIGANTOL [Concomitant]
     Indication: Vitamin D deficiency
     Dosage: DAILY DOSE: 3000 IU INTERNATIONAL UNIT(S) EVERY DAYS 3 SEPARATED DOSES (20000IE/ML)
     Route: 048
     Dates: start: 201006
  5. ATENOLOL [Concomitant]
     Active Substance: ATENOLOL
     Indication: Renal hypertension
     Dosage: DAILY DOSE: 100 MG MILLGRAM(S) EVERY DAYS 2 SEPARATED DOSES
     Route: 048
     Dates: end: 20200529
  6. ALFACALCIDOL [Concomitant]
     Active Substance: ALFACALCIDOL
     Indication: Chronic kidney disease-mineral and bone disorder
     Dosage: DAILY DOSE: 15 GTT DROP(S) EVERY DAYS
     Route: 048
     Dates: start: 20100630
  7. ALLOPURINOL [Concomitant]
     Active Substance: ALLOPURINOL
     Indication: Hyperuricaemia
     Dosage: DAILY DOSE: 300 MG MILLGRAM(S) EVERY DAYS 3 SEPARATED DOSES
     Route: 048
     Dates: start: 202001
  8. MAGNESIUM [Concomitant]
     Active Substance: MAGNESIUM
     Indication: Blood magnesium abnormal
     Dosage: DAILY DOSE: 9.9 MMOL MILLIMOLE(S) EVERY DAYS 3 SEPARATED DOSES
     Route: 048
     Dates: start: 20180205
  9. AMLODIPINE BESYLATE [Concomitant]
     Active Substance: AMLODIPINE BESYLATE
     Indication: Renal hypertension
     Dosage: DAILY DOSE: 15 MG MILLGRAM(S) EVERY DAYS 2 SEPARATED DOSES
     Route: 048
     Dates: start: 20170901
  10. SODIUM BICARBONATE [Concomitant]
     Active Substance: SODIUM BICARBONATE
     Indication: Renal tubular acidosis
     Dosage: DAILY DOSE: 6 G GRAM(S) EVERY DAYS 3 SEPARATED DOSES
     Route: 048
     Dates: start: 201009
  11. ERYTHROPOIETIN [Concomitant]
     Active Substance: ERYTHROPOIETIN
     Indication: Nephrogenic anaemia
     Dosage: 8000 IU
     Route: 065
     Dates: start: 202003
  12. FUROSEMIDE [Concomitant]
     Active Substance: FUROSEMIDE
     Indication: Hypertension
     Dosage: DAILY DOSE: 180 MG MILLGRAM(S) EVERY DAYS 3 SEPARATED DOSES
     Route: 048
     Dates: start: 202001
  13. FERRUM HAUSMANN [Concomitant]
     Indication: Iron deficiency
     Dosage: DAILY DOSE: 40 GTT DROP(S) EVERY DAYS
     Route: 048
     Dates: start: 201907

REACTIONS (5)
  - Pyrexia [Recovered/Resolved]
  - Chills [Recovered/Resolved]
  - Device related sepsis [Recovered/Resolved]
  - Headache [Recovered/Resolved]
  - Staphylococcal sepsis [Recovered/Resolved]

NARRATIVE: CASE EVENT DATE: 20200529
